FAERS Safety Report 5277672-5 (Version None)
Quarter: 2007Q1

REPORT INFORMATION
  Report Type: 
  Country: None (occurrence: None)
  Receive Date: 20070327
  Receipt Date: 20061112
  Transmission Date: 20070707
  Serious: Yes (Death, Other)
  Sender: FDA-Public Use
  Company Number: US-PFIZER INC-2006127055

PATIENT
  Age: 13 Year
  Sex: Male

DRUGS (1)
  1. ZIPRASIDONE HCL [Suspect]
     Indication: AUTISM

REACTIONS (12)
  - AGGRESSION [None]
  - CEREBROVASCULAR ACCIDENT [None]
  - CONVULSION [None]
  - DECREASED APPETITE [None]
  - ERECTION INCREASED [None]
  - HAEMATOMA [None]
  - HYDROCELE [None]
  - MIGRAINE [None]
  - OCULAR HYPERAEMIA [None]
  - PAIN [None]
  - TESTICULAR DISORDER [None]
  - TESTICULAR SWELLING [None]
